FAERS Safety Report 17015232 (Version 1)
Quarter: 2019Q4

REPORT INFORMATION
  Report Type: Spontaneous
  Country: GB (occurrence: GB)
  Receive Date: 20191111
  Receipt Date: 20191111
  Transmission Date: 20200122
  Serious: Yes (Life-Threatening, Hospitalization, Other)
  Sender: FDA-Public Use
  Company Number: GB-TEVA-2019-GB-1135791

PATIENT
  Age: 46 Year
  Sex: Female
  Weight: 136 kg

DRUGS (11)
  1. VANCOMYCIN [Suspect]
     Active Substance: VANCOMYCIN
     Dosage: 5 GRAM PER DAY
     Route: 042
     Dates: start: 20190930, end: 20191007
  2. MIRTAZAPINE. [Concomitant]
     Active Substance: MIRTAZAPINE
  3. SALBUTAMOL [Concomitant]
     Active Substance: ALBUTEROL
  4. QVAR [Concomitant]
     Active Substance: BECLOMETHASONE DIPROPIONATE
     Route: 055
  5. RANITIDINE. [Concomitant]
     Active Substance: RANITIDINE
  6. CETIRIZINE [Concomitant]
     Active Substance: CETIRIZINE HYDROCHLORIDE
  7. COCODAMOL [Concomitant]
     Active Substance: ACETAMINOPHEN\CODEINE PHOSPHATE
  8. VANCOMYCIN [Suspect]
     Active Substance: VANCOMYCIN
     Dosage: 3.5 GRAM PER DAY
     Route: 042
     Dates: start: 20190926, end: 20190928
  9. NAPROXEN. [Concomitant]
     Active Substance: NAPROXEN
  10. QUININE BISULFATE [Concomitant]
     Active Substance: QUININE BISULFATE
  11. VANCOMYCIN [Suspect]
     Active Substance: VANCOMYCIN
     Indication: CELLULITIS
     Dosage: 6 GRAM PER DAY
     Route: 042
     Dates: start: 20190928, end: 20190930

REACTIONS (1)
  - Acute kidney injury [Recovering/Resolving]

NARRATIVE: CASE EVENT DATE: 20191006
